FAERS Safety Report 6409616-4 (Version None)
Quarter: 2009Q4

REPORT INFORMATION
  Report Type: 
  Country: None (occurrence: None)
  Receive Date: 20091022
  Receipt Date: 20091009
  Transmission Date: 20100525
  Serious: Yes (Hospitalization, Other)
  Sender: FDA-Public Use
  Company Number: US-PFIZER INC-2009282157

PATIENT
  Sex: Female

DRUGS (4)
  1. DILANTIN-125 [Suspect]
     Indication: CONVULSION
     Dosage: UNK
     Route: 064
  2. KEPPRA [Suspect]
     Route: 064
  3. COCAINE [Suspect]
     Dosage: UNK
     Route: 064
  4. NEXIUM [Concomitant]
     Dosage: UNK

REACTIONS (3)
  - DRUG EXPOSURE DURING PREGNANCY [None]
  - LUNG DISORDER [None]
  - PREMATURE BABY [None]
